FAERS Safety Report 18120303 (Version 4)
Quarter: 2021Q1

REPORT INFORMATION
  Report Type: Spontaneous
  Country: US (occurrence: US)
  Receive Date: 20200806
  Receipt Date: 20210311
  Transmission Date: 20210419
  Serious: Yes (Other)
  Sender: FDA-Public Use
  Company Number: NVSC2020US215486

PATIENT

DRUGS (3)
  1. IBRANCE [Suspect]
     Active Substance: PALBOCICLIB
     Dosage: 125 MG, QD
     Route: 048
     Dates: start: 202012
  2. IBRANCE [Suspect]
     Active Substance: PALBOCICLIB
     Indication: BREAST CANCER
     Dosage: 125 MG, QD (21 DAYS ON AND 7 DAYS OFF IN CONJUNCTION WITH FEMARA)
     Route: 048
     Dates: start: 20200330, end: 202012
  3. FEMARA [Suspect]
     Active Substance: LETROZOLE
     Indication: PRODUCT USED FOR UNKNOWN INDICATION
     Dosage: UNK, QD
     Route: 065

REACTIONS (9)
  - Red blood cell count decreased [Unknown]
  - Anaemia [Unknown]
  - Memory impairment [Unknown]
  - Contusion [Unknown]
  - Alopecia [Unknown]
  - Brain neoplasm [Recovered/Resolved]
  - Impaired healing [Unknown]
  - White blood cell count decreased [Unknown]
  - Neutrophil count decreased [Unknown]
